FAERS Safety Report 8694070 (Version 3)
Quarter: 2012Q4

REPORT INFORMATION
  Report Type: 
  Country: US (occurrence: US)
  Receive Date: 20120731
  Receipt Date: 20120927
  Transmission Date: 20130627
  Serious: Yes (Death)
  Sender: FDA-Public Use
  Company Number: PHEH2012US014783

PATIENT
  Sex: Female

DRUGS (6)
  1. RECLAST [Suspect]
     Indication: OSTEOPOROSIS
     Dosage: 5 mg once a year (5 mg/100mL)
     Route: 042
     Dates: start: 20100917
  2. REMICADE [Concomitant]
     Indication: RHEUMATOID ARTHRITIS
     Dosage: 3 mg/kg, UNK
     Route: 042
  3. METHOTREXATE [Concomitant]
     Indication: RHEUMATOID ARTHRITIS
     Dosage: 5 tablets weekly
     Route: 048
  4. FOLIC ACID [Concomitant]
  5. DIGOXIN [Concomitant]
  6. ANTIARRHYTHMICS [Concomitant]

REACTIONS (1)
  - Death [Fatal]
